FAERS Safety Report 5319140-8 (Version None)
Quarter: 2007Q1

REPORT INFORMATION
  Report Type: 
  Country: None (occurrence: None)
  Receive Date: 20070202
  Receipt Date: 20060726
  Transmission Date: 20070707
  Serious: Yes (Hospitalization)
  Sender: FDA-Public Use
  Company Number: 254486

PATIENT
  Age: 36 Year
  Sex: Male
  Weight: 83.9 kg

DRUGS (9)
  1. NOVOLOG [Suspect]
     Indication: DIABETES MELLITUS INSULIN-DEPENDENT
     Dosage: 50 IU, QD, SUBCUTANEOUS
     Route: 058
     Dates: start: 20060101
  2. LANTUS [Concomitant]
  3. ZOCOR [Concomitant]
  4. WELLBUTRIN [Concomitant]
  5. PAXIL [Concomitant]
  6. ABILIFY [Concomitant]
  7. TRILEPTAL [Concomitant]
  8. LISINOPRIL [Concomitant]
  9. NOVOLOG [Suspect]

REACTIONS (1)
  - DIABETIC KETOACIDOSIS [None]
